FAERS Safety Report 8446028-6 (Version None)
Quarter: 2012Q2

REPORT INFORMATION
  Report Type: 
  Country: None (occurrence: None)
  Receive Date: 20120618
  Receipt Date: 20120614
  Transmission Date: 20120825
  Serious: Yes (Other)
  Sender: FDA-Public Use
  Company Number: FR-ROCHE-1068773

PATIENT
  Age: 65 Year
  Sex: Male

DRUGS (2)
  1. TOPLEXIL (FRANCE) [Suspect]
     Indication: COUGH
     Dosage: DOSE: 3 OR 4 DOSEFORM
     Route: 048
     Dates: start: 20120320, end: 20120503
  2. ZELBORAF [Suspect]
     Indication: METASTATIC MALIGNANT MELANOMA
     Route: 048
     Dates: start: 20120102

REACTIONS (1)
  - PANCREATITIS ACUTE [None]
